FAERS Safety Report 6628427-8 (Version None)
Quarter: 2010Q1

REPORT INFORMATION
  Report Type: 
  Country: None (occurrence: None)
  Receive Date: 20100311
  Receipt Date: 20100302
  Transmission Date: 20100710
  Serious: Yes (Hospitalization)
  Sender: FDA-Public Use
  Company Number: JP-PFIZER INC-2010014148

PATIENT

DRUGS (3)
  1. SEIBULE [Suspect]
     Indication: DIABETES MELLITUS
     Route: 048
  2. AMARYL [Suspect]
     Route: 048
  3. MELBIN [Suspect]
     Route: 048

REACTIONS (3)
  - HYPONATRAEMIA [None]
  - INAPPROPRIATE ANTIDIURETIC HORMONE SECRETION [None]
  - LOSS OF CONSCIOUSNESS [None]
